FAERS Safety Report 7471691-6 (Version None)
Quarter: 2011Q2

REPORT INFORMATION
  Report Type: 
  Country: None (occurrence: None)
  Receive Date: 20110511
  Receipt Date: 20110426
  Transmission Date: 20111010
  Serious: Yes (Other)
  Sender: FDA-Public Use
  Company Number: RS-JNJFOC-20110500062

PATIENT
  Age: 23 Year
  Sex: Female

DRUGS (3)
  1. ZOLOFT [Concomitant]
     Indication: AFFECTIVE DISORDER
     Route: 048
  2. RIVOTRIL [Concomitant]
     Indication: INSOMNIA
     Route: 048
  3. RISPERDONE [Suspect]
     Indication: PSYCHOTIC DISORDER
     Route: 048

REACTIONS (5)
  - TINNITUS [None]
  - BLINDNESS [None]
  - HYPERTENSION [None]
  - LOSS OF CONSCIOUSNESS [None]
  - NAUSEA [None]
